FAERS Safety Report 7023845-0 (Version None)
Quarter: 2010Q4

REPORT INFORMATION
  Report Type: 
  Country: None (occurrence: None)
  Receive Date: 20101001
  Receipt Date: 20100928
  Transmission Date: 20110411
  Serious: Yes (Hospitalization)
  Sender: FDA-Public Use
  Company Number: FR-WYE-G06736110

PATIENT
  Age: 9 Year
  Sex: Male

DRUGS (1)
  1. IBUPROFEN (ADVIL) [Suspect]
     Indication: PYREXIA
     Dosage: 2 INTAKES OF UNKNOWN DOSES, FREQUENCY UNKNOWN
     Route: 048
     Dates: start: 20100901, end: 20100901

REACTIONS (3)
  - CONDITION AGGRAVATED [None]
  - STAPHYLOCOCCAL SEPSIS [None]
  - VARICELLA [None]
